FAERS Safety Report 5300793-5 (Version None)
Quarter: 2007Q2

REPORT INFORMATION
  Report Type: 
  Country: None (occurrence: None)
  Receive Date: 20070418
  Receipt Date: 20070416
  Transmission Date: 20071010
  Serious: Yes (Other)
  Sender: FDA-Public Use
  Company Number: US-GENENTECH-233499

PATIENT
  Sex: Female
  Weight: 128 kg

DRUGS (9)
  1. LUCENTIS [Suspect]
     Indication: MACULAR DEGENERATION
     Dosage: UNK, SINGLE
     Route: 031
     Dates: start: 20061111, end: 20061111
  2. NORVASC [Concomitant]
     Indication: DRUG USE FOR UNKNOWN INDICATION
  3. AVALIDE [Concomitant]
     Indication: DRUG USE FOR UNKNOWN INDICATION
  4. VYTORIN [Concomitant]
     Indication: DRUG USE FOR UNKNOWN INDICATION
  5. OMACOR [Concomitant]
     Indication: DRUG USE FOR UNKNOWN INDICATION
  6. MAXZIDE [Concomitant]
     Indication: DRUG USE FOR UNKNOWN INDICATION
  7. MACROBID [Concomitant]
     Indication: DRUG USE FOR UNKNOWN INDICATION
  8. RETINAVITES [Concomitant]
     Indication: DRUG USE FOR UNKNOWN INDICATION
  9. AVASTIN [Concomitant]
     Indication: MACULAR DEGENERATION
     Route: 031
     Dates: start: 20061106

REACTIONS (1)
  - RETINAL HAEMORRHAGE [None]
